FAERS Safety Report 9095036 (Version 3)
Quarter: 2013Q2

REPORT INFORMATION
  Report Type: Spontaneous
  Country: US (occurrence: US)
  Receive Date: 20130220
  Receipt Date: 20130530
  Transmission Date: 20140414
  Serious: No
  Sender: FDA-Public Use
  Company Number: US-009507513-1302USA008725

PATIENT
  Age: 56 Year
  Sex: Male
  Weight: 95.23 kg

DRUGS (4)
  1. PEG-INTRON [Suspect]
     Indication: HEPATITIS C
     Dosage: 150 MICROGRAM, QW
     Route: 058
     Dates: start: 201207
  2. RIBAVIRIN [Suspect]
     Indication: HEPATITIS C
  3. GLIPIZIDE [Concomitant]
  4. PRILOSEC [Concomitant]

REACTIONS (3)
  - Skin disorder [Unknown]
  - Product quality issue [Unknown]
  - Device difficult to use [Unknown]
